FAERS Safety Report 17467590 (Version 1)
Quarter: 2020Q1

REPORT INFORMATION
  Report Type: Spontaneous
  Country: US (occurrence: US)
  Receive Date: 20200226
  Receipt Date: 20200226
  Transmission Date: 20200409
  Serious: Yes (Other)
  Sender: FDA-Public Use
  Company Number: None

PATIENT
  Age: 23 Year
  Sex: Female

DRUGS (1)
  1. ICATIBANT [Suspect]
     Active Substance: ICATIBANT ACETATE
     Indication: COMPLEMENT FACTOR
     Dosage: ?          OTHER FREQUENCY:PRN FOR ACUTE HAE;?
     Route: 058
     Dates: start: 20190927

REACTIONS (2)
  - Emergency care [None]
  - Transfusion [None]

NARRATIVE: CASE EVENT DATE: 20200216
